FAERS Safety Report 24324556 (Version 2)
Quarter: 2024Q3

REPORT INFORMATION
  Report Type: Spontaneous
  Country: DK (occurrence: DK)
  Receive Date: 20240916
  Receipt Date: 20240917
  Transmission Date: 20241017
  Serious: Yes (Hospitalization, Other)
  Sender: PFIZER
  Company Number: DK-ORESUND-24OPAJY0602P

PATIENT
  Age: 8 Decade
  Sex: Female

DRUGS (2)
  1. METHOTREXATE [Suspect]
     Active Substance: METHOTREXATE
     Indication: Rheumatoid arthritis
     Dosage: 10 MG, WEEKLY
     Route: 058
  2. ALENDRONIC ACID [Concomitant]
     Active Substance: ALENDRONIC ACID
     Dosage: UNK

REACTIONS (6)
  - Atypical fracture [Recovered/Resolved]
  - Fibula fracture [Recovered/Resolved]
  - Tibia fracture [Recovered/Resolved]
  - Stress fracture [Recovered/Resolved]
  - Fracture [Recovered/Resolved]
  - Off label use [Unknown]
